FAERS Safety Report 5276000-9 (Version None)
Quarter: 2007Q1

REPORT INFORMATION
  Report Type: 
  Country: None (occurrence: None)
  Receive Date: 20070326
  Receipt Date: 20061103
  Transmission Date: 20070707
  Serious: Yes (Hospitalization)
  Sender: FDA-Public Use
  Company Number: US-JNJFOC-20061000855

PATIENT
  Sex: Male
  Weight: 83.46 kg

DRUGS (20)
  1. PLACEBO [Suspect]
     Route: 048
  2. PLACEBO [Suspect]
     Indication: HIV INFECTION
     Route: 048
  3. TMC114 [Suspect]
     Route: 048
  4. TMC114 [Suspect]
     Indication: HIV INFECTION
     Route: 048
  5. RITONAVIR [Suspect]
     Route: 048
  6. RITONAVIR [Suspect]
     Indication: HIV INFECTION
     Route: 048
  7. THALIDOMIDE [Suspect]
     Indication: RECTAL ULCER
     Route: 048
  8. TRUVADA [Concomitant]
     Indication: HIV INFECTION
     Route: 048
  9. FUZEON [Concomitant]
     Indication: HIV INFECTION
     Route: 058
  10. AMBIEN [Concomitant]
     Indication: INSOMNIA
     Route: 048
  11. PROMETHAZINE [Concomitant]
     Indication: NAUSEA
     Route: 048
  12. LOPERAMIDE HCL [Concomitant]
     Indication: DIARRHOEA
     Route: 048
  13. DAPSONE [Concomitant]
     Indication: ANTIFUNGAL PROPHYLAXIS
     Route: 048
  14. NEURONTIN [Concomitant]
     Indication: NEUROPATHY PERIPHERAL
     Route: 048
  15. TRAZODONE HCL [Concomitant]
     Indication: INSOMNIA
     Route: 048
  16. MYCELEX [Concomitant]
     Indication: CANDIDIASIS
     Route: 048
  17. KENALOG [Concomitant]
     Indication: APHTHOUS STOMATITIS
     Route: 061
  18. NYSTATIN [Concomitant]
     Indication: ORAL CANDIDIASIS
     Route: 048
  19. MYCOSTATIN [Concomitant]
     Indication: RASH
     Route: 061
  20. ALDARA [Concomitant]
     Indication: RECTAL ULCER
     Route: 061

REACTIONS (2)
  - BRADYCARDIA [None]
  - COSTOCHONDRITIS [None]
